FAERS Safety Report 8305794-0 (Version None)
Quarter: 2012Q1

REPORT INFORMATION
  Report Type: 
  Country: None (occurrence: None)
  Receive Date: 20120326
  Receipt Date: 20120106
  Transmission Date: 20120608
  Serious: Yes (Other)
  Sender: FDA-Public Use
  Company Number: PHEH2011US01163

PATIENT
  Age: 63 Year
  Sex: Female

DRUGS (2)
  1. TASIGNA [Suspect]
     Indication: MALIGNANT SOFT TISSUE NEOPLASM
     Dosage: 400 MG, BID, ORAL, 400 MG, DAILY, ORAL
     Route: 048
     Dates: start: 20110301
  2. TASIGNA [Suspect]
     Indication: MALIGNANT SOFT TISSUE NEOPLASM
     Dosage: 400 MG, BID, ORAL, 400 MG, DAILY, ORAL
     Route: 048
     Dates: start: 20110719, end: 20111107

REACTIONS (3)
  - FATIGUE [None]
  - DYSPNOEA [None]
  - ASTHENIA [None]
